APPROVED DRUG PRODUCT: AZITHROMYCIN
Active Ingredient: AZITHROMYCIN
Strength: EQ 600MG BASE
Dosage Form/Route: TABLET;ORAL
Application: A065360 | Product #001
Applicant: AUROBINDO PHARMA USA INC
Approved: Jan 8, 2007 | RLD: No | RS: No | Type: DISCN